FAERS Safety Report 5675410-5 (Version None)
Quarter: 2008Q1

REPORT INFORMATION
  Report Type: 
  Country: None (occurrence: None)
  Receive Date: 20080320
  Receipt Date: 20080312
  Transmission Date: 20080703
  Serious: Yes (Other)
  Sender: FDA-Public Use
  Company Number: JP-MERCK-0803USA02518

PATIENT
  Age: 60 Year

DRUGS (3)
  1. ZETIA [Suspect]
     Indication: HYPERLIPIDAEMIA
     Route: 048
     Dates: start: 20080101, end: 20080101
  2. AMLODIPINE BESYLATE [Concomitant]
     Route: 065
     Dates: start: 20080101
  3. LANSOPRAZOLE [Concomitant]
     Route: 065
     Dates: start: 20080101

REACTIONS (1)
  - PANCYTOPENIA [None]
